FAERS Safety Report 10254822 (Version 1)
Quarter: 2014Q2

REPORT INFORMATION
  Report Type: Spontaneous
  Country: US (occurrence: US)
  Receive Date: 20140624
  Receipt Date: 20140624
  Transmission Date: 20141212
  Serious: No
  Sender: FDA-Public Use
  Company Number: US-JNJFOC-20140607237

PATIENT
  Sex: Female
  Weight: 86.18 kg

DRUGS (10)
  1. DURAGESIC [Suspect]
     Indication: PAIN
     Route: 062
  2. ZENPEP [Concomitant]
     Route: 048
     Dates: start: 201301
  3. XARELTO [Concomitant]
     Indication: DEEP VEIN THROMBOSIS
     Route: 048
     Dates: start: 2013
  4. ALLEGRA D [Concomitant]
     Indication: MULTIPLE ALLERGIES
     Dosage: 60MG-100MG
     Route: 048
  5. VITAMIN B12 [Concomitant]
     Indication: HYPOVITAMINOSIS
     Route: 048
  6. LEVOTHYROXINE [Concomitant]
     Indication: THYROID DISORDER
     Route: 048
     Dates: start: 2009
  7. LORAZEPAM [Concomitant]
     Indication: ANXIETY
     Route: 048
  8. POTASSIUM CITRATE [Concomitant]
     Indication: RENAL DISORDER
     Route: 048
     Dates: start: 2009
  9. PROTONIX [Concomitant]
     Indication: GASTROOESOPHAGEAL REFLUX DISEASE
     Route: 048
  10. ZOLOFT [Concomitant]
     Indication: DEPRESSION
     Route: 065
     Dates: start: 2011

REACTIONS (2)
  - Product adhesion issue [Unknown]
  - Wrong technique in drug usage process [Unknown]
